FAERS Safety Report 8330048-6 (Version None)
Quarter: 2012Q2

REPORT INFORMATION
  Report Type: 
  Country: None (occurrence: None)
  Receive Date: 20120423
  Receipt Date: 20120405
  Transmission Date: 20120825
  Serious: Yes (Other)
  Sender: FDA-Public Use
  Company Number: 2012031597

PATIENT
  Age: 50 Year
  Sex: Female

DRUGS (1)
  1. BERINERT [Suspect]

REACTIONS (2)
  - ACCIDENTAL EXPOSURE [None]
  - MATERNAL EXPOSURE DURING PREGNANCY [None]
